FAERS Safety Report 23400396 (Version 1)
Quarter: 2024Q1

REPORT INFORMATION
  Report Type: Spontaneous
  Country: AU (occurrence: AU)
  Receive Date: 20240115
  Receipt Date: 20240115
  Transmission Date: 20240410
  Serious: Yes (Death, Hospitalization, Other)
  Sender: FDA-Public Use
  Company Number: AU-AMGEN-AUSSP2024006253

PATIENT
  Age: 56 Year
  Sex: Male

DRUGS (3)
  1. CARFILZOMIB [Suspect]
     Active Substance: CARFILZOMIB
     Indication: Plasma cell myeloma refractory
     Dosage: 54 MILLIGRAM, CYCLICAL
     Route: 042
     Dates: start: 20230427, end: 20230511
  2. DEXAMETHASONE [Suspect]
     Active Substance: DEXAMETHASONE
     Indication: Plasma cell myeloma refractory
     Dosage: 40 MILLIGRAM, CYCLICAL
     Route: 048
     Dates: start: 20230427, end: 20230518
  3. BELANTAMAB MAFODOTIN [Suspect]
     Active Substance: BELANTAMAB MAFODOTIN
     Indication: Plasma cell myeloma refractory
     Dosage: 350 MILLIGRAM
     Route: 042
     Dates: start: 20230427, end: 20230427

REACTIONS (4)
  - Respiratory syncytial virus test positive [Fatal]
  - COVID-19 [Fatal]
  - Rhinovirus infection [Fatal]
  - Pyrexia [Recovered/Resolved]

NARRATIVE: CASE EVENT DATE: 20230429
